FAERS Safety Report 4335961-2 (Version None)
Quarter: 2004Q2

REPORT INFORMATION
  Report Type: 
  Country: None (occurrence: None)
  Receive Date: 20040406
  Receipt Date: 20040326
  Transmission Date: 20050107
  Serious: Yes (Other)
  Sender: FDA-Public Use
  Company Number: FR-SHR-04-023172

PATIENT

DRUGS (1)
  1. MIRENA [Suspect]
     Dosage: 20 U G, CONT, INTRA-UTERINE
     Route: 015

REACTIONS (1)
  - BREAST CANCER FEMALE [None]
